FAERS Safety Report 6604522-4 (Version None)
Quarter: 2010Q1

REPORT INFORMATION
  Report Type: 
  Country: None (occurrence: None)
  Receive Date: 20100226
  Receipt Date: 20091110
  Transmission Date: 20100710
  Serious: No
  Sender: FDA-Public Use
  Company Number: A0816285A

PATIENT
  Age: 17 Year
  Sex: Male

DRUGS (6)
  1. LAMOTRIGINE [Suspect]
     Indication: DEPRESSION
     Dosage: 50MG PER DAY
     Route: 048
     Dates: start: 20090801
  2. FLUOXETINE [Concomitant]
  3. LIOTHYRONINE SODIUM [Concomitant]
  4. RISPERIDONE [Concomitant]
  5. CYMBALTA [Concomitant]
  6. CYTOMEL [Concomitant]

REACTIONS (1)
  - HEADACHE [None]
